FAERS Safety Report 7499790-3 (Version None)
Quarter: 2011Q2

REPORT INFORMATION
  Report Type: 
  Country: None (occurrence: None)
  Receive Date: 20110524
  Receipt Date: 20110517
  Transmission Date: 20111010
  Serious: Yes (Death, Other)
  Sender: FDA-Public Use
  Company Number: US-ROCHE-767445

PATIENT
  Sex: Female
  Weight: 40 kg

DRUGS (3)
  1. CELLCEPT [Suspect]
     Route: 048
     Dates: start: 19990101
  2. CELLCEPT [Suspect]
     Route: 048
     Dates: start: 19990401
  3. RAPAMUNE [Concomitant]
     Route: 048
     Dates: start: 20060101

REACTIONS (4)
  - ENDARTERECTOMY [None]
  - INTESTINAL GANGRENE [None]
  - DEATH [None]
  - PANCREATIC CYST [None]
